FAERS Safety Report 16903038 (Version 2)
Quarter: 2019Q4

REPORT INFORMATION
  Report Type: Spontaneous
  Country: JP (occurrence: JP)
  Receive Date: 20191010
  Receipt Date: 20191121
  Transmission Date: 20200122
  Serious: Yes (Hospitalization)
  Sender: FDA-Public Use
  Company Number: JP-TEVA-2019-JP-1107937

PATIENT
  Age: 68 Year
  Sex: Female

DRUGS (20)
  1. YODEL [Concomitant]
     Active Substance: SENNA LEAF
     Route: 065
  2. AZILECT [Suspect]
     Active Substance: RASAGILINE MESYLATE
     Indication: PARKINSON^S DISEASE
     Dosage: 1 MILLIGRAM DAILY;
     Route: 048
     Dates: start: 20190825
  3. MOSAPRIDE CITRATE [Concomitant]
     Active Substance: MOSAPRIDE CITRATE
     Route: 065
  4. AMITIZA [Concomitant]
     Active Substance: LUBIPROSTONE
     Route: 065
  5. MAGNESIUM OXIDE. [Concomitant]
     Active Substance: MAGNESIUM OXIDE
     Route: 065
  6. LOXOPROFEN NA [Concomitant]
     Active Substance: LOXOPROFEN SODIUM
     Dosage: TAPE (INCLUDING POULTICE)
     Route: 065
  7. REBAMIPIDE [Concomitant]
     Active Substance: REBAMIPIDE
     Route: 065
  8. RIVOTRIL [Concomitant]
     Active Substance: CLONAZEPAM
     Route: 065
  9. ELOBIXIBAT [Concomitant]
     Active Substance: ELOBIXIBAT
     Route: 065
  10. HEPARINOID [Concomitant]
     Active Substance: CHONDROITIN SULFATE (BOVINE)
     Route: 065
  11. TRERIEF [Concomitant]
     Active Substance: ZONISAMIDE
     Route: 065
  12. TAKECAB [Concomitant]
     Active Substance: VONOPRAZAN FUMURATE
     Route: 065
  13. NOURIAST [Concomitant]
     Active Substance: ISTRADEFYLLINE
     Route: 065
  14. MEMARY [Concomitant]
     Active Substance: MEMANTINE HYDROCHLORIDE
     Route: 065
  15. STALEVO [Concomitant]
     Active Substance: CARBIDOPA\ENTACAPONE\LEVODOPA
     Route: 065
  16. STALEVO [Concomitant]
     Active Substance: CARBIDOPA\ENTACAPONE\LEVODOPA
     Route: 065
  17. ATORVASTATIN [Concomitant]
     Active Substance: ATORVASTATIN
     Route: 065
  18. THYRADIN S [Concomitant]
     Active Substance: LEVOTHYROXINE SODIUM
     Route: 065
  19. NEUPRO [Concomitant]
     Active Substance: ROTIGOTINE
     Route: 065
  20. METHADERM [Concomitant]
     Active Substance: DEXAMETHASONE DIPROPIONATE
     Route: 065

REACTIONS (2)
  - Blood pressure increased [Recovered/Resolved]
  - Dementia Alzheimer^s type [Recovering/Resolving]

NARRATIVE: CASE EVENT DATE: 20190903
